FAERS Safety Report 10449992 (Version 2)
Quarter: 2015Q2

REPORT INFORMATION
  Report Type: Spontaneous
  Country: US (occurrence: US)
  Receive Date: 20140912
  Receipt Date: 20150406
  Transmission Date: 20150821
  Serious: No
  Sender: FDA-Public Use
  Company Number: US-TEVA-507739USA

PATIENT
  Sex: Female

DRUGS (5)
  1. FLUTICASONE [Concomitant]
     Active Substance: FLUTICASONE\FLUTICASONE PROPIONATE
  2. COPAXONE [Suspect]
     Active Substance: GLATIRAMER ACETATE
     Indication: MULTIPLE SCLEROSIS
     Route: 058
  3. SUMATRIPTAN. [Concomitant]
     Active Substance: SUMATRIPTAN
  4. FORADIL [Concomitant]
     Active Substance: FORMOTEROL FUMARATE
  5. ASMANEX [Concomitant]
     Active Substance: MOMETASONE FUROATE

REACTIONS (1)
  - Anxiety [Not Recovered/Not Resolved]
